FAERS Safety Report 12447913 (Version 1)
Quarter: 2016Q2

REPORT INFORMATION
  Report Type: Report from Study
  Country: IL (occurrence: IL)
  Receive Date: 20160608
  Receipt Date: 20160608
  Transmission Date: 20160815
  Serious: Yes (Hospitalization, Other)
  Sender: FDA-Public Use
  Company Number: IL-BAYER-2016-107304

PATIENT
  Age: 62 Year
  Sex: Female

DRUGS (1)
  1. BETAFERON [Suspect]
     Active Substance: INTERFERON BETA-1B
     Indication: MULTIPLE SCLEROSIS
     Dosage: UNK
     Dates: start: 20041201

REACTIONS (3)
  - Seizure [None]
  - Brain neoplasm benign [None]
  - Loss of consciousness [None]

NARRATIVE: CASE EVENT DATE: 201604
